FAERS Safety Report 9392854 (Version 1)
Quarter: 2013Q3

REPORT INFORMATION
  Report Type: Spontaneous
  Country: BR (occurrence: BR)
  Receive Date: 20130710
  Receipt Date: 20130710
  Transmission Date: 20140515
  Serious: Yes (Hospitalization)
  Sender: FDA-Public Use
  Company Number: BR-ASTRAZENECA-2013SE50611

PATIENT
  Age: 63 Year
  Sex: Male
  Weight: 86 kg

DRUGS (4)
  1. ATENOLOL [Suspect]
     Indication: HYPERTENSION
     Route: 065
  2. ATACAND [Suspect]
     Indication: HYPERTENSION
     Route: 048
  3. MONOCORDIL [Concomitant]
  4. ATORVASTATIN [Concomitant]
     Indication: BLOOD CHOLESTEROL INCREASED
     Dates: start: 2011

REACTIONS (4)
  - Venous occlusion [Recovered/Resolved]
  - Blood cholesterol increased [Unknown]
  - Off label use [Not Recovered/Not Resolved]
  - Intracardiac thrombus [None]
